FAERS Safety Report 9341066 (Version 1)
Quarter: 2013Q2

REPORT INFORMATION
  Report Type: Spontaneous
  Country: BR (occurrence: BR)
  Receive Date: 20130610
  Receipt Date: 20130610
  Transmission Date: 20140414
  Serious: Yes (Hospitalization, Other)
  Sender: FDA-Public Use
  Company Number: BR-ASTRAZENECA-2013SE40204

PATIENT
  Age: 73 Year
  Sex: Female
  Weight: 88 kg

DRUGS (13)
  1. TENORETIC [Suspect]
     Indication: HYPERTENSION
     Dosage: 100/25 MG HALF TABLET DAILY
     Route: 048
     Dates: start: 1993
  2. NEXIUM [Suspect]
     Indication: GASTRITIS
     Route: 048
     Dates: start: 2011, end: 201207
  3. NEXIUM [Suspect]
     Indication: GASTRITIS EROSIVE
     Route: 048
     Dates: start: 2011, end: 201207
  4. NEXIUM [Suspect]
     Indication: GASTRITIS
     Route: 048
     Dates: start: 201207
  5. NEXIUM [Suspect]
     Indication: GASTRITIS EROSIVE
     Route: 048
     Dates: start: 201207
  6. NEXIUM [Suspect]
     Indication: GASTRITIS
     Route: 048
     Dates: start: 201303
  7. NEXIUM [Suspect]
     Indication: GASTRITIS EROSIVE
     Route: 048
     Dates: start: 201303
  8. SALINE SOLUTION [Suspect]
     Indication: DIZZINESS
     Route: 042
     Dates: start: 201302, end: 201302
  9. GLIFAGE [Interacting]
     Indication: DIABETES MELLITUS
     Route: 065
     Dates: start: 2010
  10. DRAMIN [Suspect]
     Indication: DIZZINESS
     Route: 042
     Dates: start: 201302, end: 201302
  11. UNSPECIFIED INGREDIENT [Interacting]
     Indication: COMPUTERISED TOMOGRAM
     Route: 042
     Dates: start: 201108, end: 201108
  12. DIGEPLUS [Concomitant]
     Indication: GASTRITIS
     Dates: start: 2011
  13. LORAZEPAN [Concomitant]
     Indication: SLEEP DISORDER

REACTIONS (11)
  - Drug interaction [Recovered/Resolved]
  - Cholelithiasis [Recovered/Resolved]
  - Dizziness [Recovered/Resolved]
  - Diverticulum [Unknown]
  - Gastritis [Unknown]
  - Gastritis erosive [Unknown]
  - Skin hyperpigmentation [Recovered/Resolved]
  - Hypersensitivity [Not Recovered/Not Resolved]
  - Diarrhoea [Recovered/Resolved]
  - Alopecia [Not Recovered/Not Resolved]
  - Off label use [Recovered/Resolved]
